FAERS Safety Report 7978713-4 (Version None)
Quarter: 2011Q4

REPORT INFORMATION
  Report Type: 
  Country: None (occurrence: None)
  Receive Date: 20111214
  Receipt Date: 20111206
  Transmission Date: 20120403
  Serious: Yes (Hospitalization)
  Sender: FDA-Public Use
  Company Number: PL-ASTELLAS-2011EU002071

PATIENT
  Sex: Male
  Weight: 15 kg

DRUGS (2)
  1. TACROLIMUS [Suspect]
     Indication: DERMATITIS ATOPIC
     Dosage: 0.03 %, WEEKLY
     Route: 061
     Dates: start: 20090505
  2. CORTICOSTEROID NOS [Concomitant]
     Indication: DERMATITIS ATOPIC
     Dosage: UNK
     Route: 061

REACTIONS (2)
  - SALMONELLOSIS [None]
  - GASTROENTERITIS [None]
